FAERS Safety Report 17988334 (Version 1)
Quarter: 2020Q3

REPORT INFORMATION
  Report Type: Spontaneous
  Country: FR (occurrence: FR)
  Receive Date: 20200707
  Receipt Date: 20200707
  Transmission Date: 20201103
  Serious: Yes (Other)
  Sender: FDA-Public Use
  Company Number: FR-ACCORD-189117

PATIENT
  Age: 67 Year
  Sex: Female

DRUGS (1)
  1. GEMCITABINE ACCORD [Suspect]
     Active Substance: GEMCITABINE HYDROCHLORIDE
     Indication: OVARIAN CANCER METASTATIC
     Dosage: 2000 MG
     Route: 042
     Dates: start: 20200304, end: 20200422

REACTIONS (1)
  - Panniculitis [Not Recovered/Not Resolved]

NARRATIVE: CASE EVENT DATE: 202004
